FAERS Safety Report 19126731 (Version 2)
Quarter: 2021Q2

REPORT INFORMATION
  Report Type: Report from Study
  Country: US (occurrence: US)
  Receive Date: 20210412
  Receipt Date: 20210506
  Transmission Date: 20210717
  Serious: Yes (Hospitalization)
  Sender: FDA-Public Use
  Company Number: US-SEATTLE GENETICS-2021SGN01416

PATIENT
  Sex: Female

DRUGS (2)
  1. CAPECITABINE. [Concomitant]
     Active Substance: CAPECITABINE
  2. TUCATINIB [Suspect]
     Active Substance: TUCATINIB
     Indication: BREAST CANCER FEMALE
     Dosage: UNK
     Route: 048

REACTIONS (7)
  - Central nervous system lesion [Unknown]
  - Computerised tomogram abnormal [Unknown]
  - Hospitalisation [Unknown]
  - Lymphadenopathy [Unknown]
  - Product dose omission issue [Unknown]
  - Tumour marker increased [Unknown]
  - Surgery [Unknown]
